FAERS Safety Report 22642857 (Version 1)
Quarter: 2023Q2

REPORT INFORMATION
  Report Type: Spontaneous
  Country: US (occurrence: US)
  Receive Date: 20230627
  Receipt Date: 20230627
  Transmission Date: 20230722
  Serious: No
  Sender: FDA-Public Use
  Company Number: US-Accord-283912

PATIENT
  Sex: Female
  Weight: 76.2 kg

DRUGS (1)
  1. MITOMYCIN [Suspect]
     Active Substance: MITOMYCIN
     Indication: Bladder neoplasm
     Dosage: 20MG, INTRA-BLADDER WEEKLY FOR 3 WEEKS, (EVERY 3 MONTHS)

REACTIONS (2)
  - Adverse event [Unknown]
  - Off label use [Unknown]
